FAERS Safety Report 24572869 (Version 1)
Quarter: 2024Q4

REPORT INFORMATION
  Report Type: Spontaneous
  Country: US (occurrence: US)
  Receive Date: 20241101
  Receipt Date: 20241101
  Transmission Date: 20250115
  Serious: No
  Sender: Tarsus Pharmaceuticals
  Company Number: US-TARSUS PHARMACEUTICALS-TSP-US-2024-000384

PATIENT
  Age: 46 Year
  Sex: Female

DRUGS (1)
  1. XDEMVY [Suspect]
     Active Substance: LOTILANER
     Indication: Arthropod infestation
     Dosage: 1 DROP, BID (BOTH EYES)
     Route: 047
     Dates: start: 20240823

REACTIONS (3)
  - Product container issue [Unknown]
  - Device delivery system issue [Unknown]
  - Extra dose administered [Unknown]
